FAERS Safety Report 6219187-3 (Version None)
Quarter: 2009Q2

REPORT INFORMATION
  Report Type: 
  Country: None (occurrence: None)
  Receive Date: 20090609
  Receipt Date: 20090603
  Transmission Date: 20091009
  Serious: Yes (Death, Hospitalization)
  Sender: FDA-Public Use
  Company Number: IN-ABBOTT-09R-078-0577657-00

PATIENT
  Sex: Male

DRUGS (3)
  1. SURVANTA [Suspect]
     Indication: ACUTE RESPIRATORY DISTRESS SYNDROME
     Dates: start: 20090529
  2. ANTIBIOTICS [Concomitant]
     Indication: PNEUMONIA KLEBSIELLA
  3. ANTIBIOTICS [Concomitant]
     Indication: KLEBSIELLA SEPSIS

REACTIONS (4)
  - ACUTE RESPIRATORY DISTRESS SYNDROME [None]
  - CARDIO-RESPIRATORY ARREST [None]
  - KLEBSIELLA SEPSIS [None]
  - PULMONARY HAEMORRHAGE [None]
